FAERS Safety Report 8600430-8 (Version None)
Quarter: 2012Q3

REPORT INFORMATION
  Report Type: 
  Country: None (occurrence: None)
  Receive Date: 20120817
  Receipt Date: 20120804
  Transmission Date: 20120928
  Serious: Yes (Other)
  Sender: FDA-Public Use
  Company Number: CZ-PAR PHARMACEUTICAL, INC-2012SCPR004558

PATIENT

DRUGS (8)
  1. DEXAMETHASONE [Suspect]
     Indication: PEMPHIGUS
     Dosage: 3 MG, / DAY
     Route: 065
     Dates: end: 20071001
  2. PREDNISONE TAB [Suspect]
     Dosage: 20 MG, / DAY
     Route: 065
  3. PREDNISONE TAB [Suspect]
     Dosage: 15 MG, / DAY
     Route: 065
     Dates: end: 20091001
  4. AZATHIOPRINE SODIUM [Suspect]
     Indication: PEMPHIGUS
     Dosage: 100 MG, / DAY
     Route: 065
  5. METHYLPREDNISOLONE [Suspect]
     Indication: PEMPHIGUS
     Dosage: 72 MG, / DAY
     Route: 065
     Dates: end: 20071001
  6. AZATHIOPRINE SODIUM [Suspect]
     Dosage: 25 MG, / DAY
     Route: 065
  7. PREDNISONE TAB [Suspect]
     Indication: PEMPHIGUS
     Dosage: 90 MG, / DAY
     Route: 065
  8. CYCLOPHOSPHAMIDE [Suspect]
     Indication: PEMPHIGUS
     Dosage: 100 MG, / DAY
     Route: 065

REACTIONS (7)
  - HYPERLIPIDAEMIA [None]
  - SLEEP DISORDER [None]
  - WEIGHT INCREASED [None]
  - STEROID WITHDRAWAL SYNDROME [None]
  - MENTAL DISORDER [None]
  - MOOD SWINGS [None]
  - HYPERGLYCAEMIA [None]
